FAERS Safety Report 9786809 (Version 1)
Quarter: 2013Q4

REPORT INFORMATION
  Report Type: Report from Study
  Country: IT (occurrence: IT)
  Receive Date: 20131227
  Receipt Date: 20131227
  Transmission Date: 20140711
  Serious: Yes (Other)
  Sender: FDA-Public Use
  Company Number: IT-GILEAD-2013-0090643

PATIENT
  Age: 48 Year
  Sex: Male

DRUGS (1)
  1. EMTRICITABINE/TENOFOVIR DISOPROXIL FUMARATE [Suspect]
     Indication: HIV INFECTION
     Route: 065

REACTIONS (4)
  - Liver disorder [Unknown]
  - Renal disorder [Unknown]
  - Cardiovascular disorder [Unknown]
  - Lipoatrophy [Unknown]
